FAERS Safety Report 24300052 (Version 1)
Quarter: 2024Q3

REPORT INFORMATION
  Report Type: Spontaneous
  Country: US (occurrence: None)
  Receive Date: 20240909
  Receipt Date: 20240909
  Transmission Date: 20241016
  Serious: Yes (Other)
  Sender: Public
  Company Number: None

PATIENT
  Age: 82 Year
  Sex: Female
  Weight: 63 kg

DRUGS (1)
  1. POMALYST [Suspect]
     Active Substance: POMALIDOMIDE
     Indication: Plasma cell myeloma
     Dosage: 3 MG DAILY ORAL
     Route: 048
     Dates: start: 20240822

REACTIONS (3)
  - Dizziness [None]
  - Asthenia [None]
  - Constipation [None]

NARRATIVE: CASE EVENT DATE: 20240909
